FAERS Safety Report 24422188 (Version 1)
Quarter: 2024Q4

REPORT INFORMATION
  Report Type: Spontaneous
  Country: CA (occurrence: CA)
  Receive Date: 20241010
  Receipt Date: 20241010
  Transmission Date: 20250115
  Serious: Yes (Other)
  Sender: AMGEN
  Company Number: CA-AMGEN-CANSP2024199443

PATIENT
  Age: 13 Year
  Sex: Female

DRUGS (3)
  1. ENBREL [Suspect]
     Active Substance: ETANERCEPT
     Indication: Juvenile idiopathic arthritis
     Dosage: UNK, (THERAPY DURATION 2472 DAYS)
     Route: 065
  2. ADALIMUMAB [Suspect]
     Active Substance: ADALIMUMAB
     Indication: Juvenile idiopathic arthritis
     Dosage: UNK (SOLUTION)
     Route: 058
  3. ERELZI [Suspect]
     Active Substance: ETANERCEPT-SZZS
     Indication: Juvenile idiopathic arthritis
     Dosage: UNK
     Route: 065

REACTIONS (2)
  - Juvenile idiopathic arthritis [Unknown]
  - Therapy non-responder [Unknown]
